FAERS Safety Report 24386849 (Version 2)
Quarter: 2024Q4

REPORT INFORMATION
  Report Type: Spontaneous
  Country: AU (occurrence: AU)
  Receive Date: 20241002
  Receipt Date: 20241126
  Transmission Date: 20250114
  Serious: Yes (Other)
  Sender: ROCHE
  Company Number: AU-002147023-NVSC2024AU176577

PATIENT
  Sex: Female

DRUGS (2)
  1. XOLAIR [Suspect]
     Active Substance: OMALIZUMAB
     Indication: Product used for unknown indication
     Dosage: 150 MG, Q4W (INJECTION) (THREE XOLAIR)
     Route: 065
     Dates: start: 201610
  2. PREDNISONE [Suspect]
     Active Substance: PREDNISONE
     Indication: Product used for unknown indication
     Dosage: 25 MG
     Route: 065

REACTIONS (13)
  - Pneumonitis [Unknown]
  - Sinus arrest [Unknown]
  - Asthma [Unknown]
  - Sinusitis [Unknown]
  - Hypersensitivity [Unknown]
  - Condition aggravated [Unknown]
  - Atopy [Unknown]
  - Heart rate increased [Unknown]
  - Insomnia [Unknown]
  - Pain [Unknown]
  - Product dose omission issue [Unknown]
  - Product supply issue [Unknown]
  - Symptom recurrence [Unknown]
